FAERS Safety Report 7155653-4 (Version None)
Quarter: 2010Q4

REPORT INFORMATION
  Report Type: 
  Country: None (occurrence: None)
  Receive Date: 20101214
  Receipt Date: 20101211
  Transmission Date: 20110411
  Serious: Yes (Life-Threatening, Hospitalization, Other)
  Sender: FDA-Public Use
  Company Number: DE-PAR PHARMACEUTICAL, INC-2010SCPR002144

PATIENT
  Age: 80 Year
  Sex: Female
  Weight: 75 kg

DRUGS (7)
  1. IBUPROFEN [Suspect]
     Indication: PRODUCT USED FOR UNKNOWN INDICATION
     Dosage: 600 MG, TID
     Route: 048
     Dates: start: 20091211, end: 20100303
  2. IBUPROFEN [Suspect]
     Dosage: 600 MG, TWO TIMES DAILY
     Route: 048
     Dates: start: 20100304, end: 20100806
  3. RAMIPRIL AL [Suspect]
     Indication: PRODUCT USED FOR UNKNOWN INDICATION
     Dosage: 2.5 MG, ONCE A DAY
     Route: 048
     Dates: start: 20090427, end: 20091210
  4. RAMIPRIL [Suspect]
     Indication: PRODUCT USED FOR UNKNOWN INDICATION
     Dosage: 5 MG, ONCE A DAY
     Route: 065
     Dates: start: 20091211, end: 20100812
  5. CIPRAMIL                           /00582602/ [Suspect]
     Indication: PRODUCT USED FOR UNKNOWN INDICATION
     Dosage: UNK
     Route: 065
  6. CITALOPRAM HYDROBROMIDE [Suspect]
     Indication: PRODUCT USED FOR UNKNOWN INDICATION
     Dosage: UNK, UNK
     Route: 065
  7. OMEPRAZOLE [Suspect]
     Indication: PRODUCT USED FOR UNKNOWN INDICATION
     Dosage: UNK
     Route: 065
     Dates: start: 20090427, end: 20100812

REACTIONS (1)
  - RENAL FAILURE ACUTE [None]
